FAERS Safety Report 6257432-9 (Version None)
Quarter: 2009Q3

REPORT INFORMATION
  Report Type: 
  Country: None (occurrence: None)
  Receive Date: 20090706
  Receipt Date: 20090701
  Transmission Date: 20100115
  Serious: Yes (Hospitalization, Other)
  Sender: FDA-Public Use
  Company Number: FR-ROXANE LABORATORIES, INC.-2009-RO-00642RO

PATIENT
  Age: 35 Year
  Sex: Male

DRUGS (11)
  1. ZOLPIDEM [Suspect]
     Indication: INJECTION
     Route: 042
  2. METHADONE [Suspect]
     Indication: DRUG DEPENDENCE
  3. MORPHINE [Suspect]
     Indication: ANALGESIA
  4. NEFOPAM [Suspect]
     Indication: ANALGESIA
  5. HEPARIN SODIUM [Suspect]
     Indication: ISCHAEMIA
  6. ASPIRIN [Suspect]
     Indication: ISCHAEMIA
  7. BUFLOMEDIL [Suspect]
     Indication: ISCHAEMIA
     Route: 042
  8. PARACETAMOL [Suspect]
     Indication: ANALGESIA
     Route: 042
  9. PENTOXIFYLLINE [Suspect]
     Indication: VASODILATION PROCEDURE
     Route: 048
  10. ANTIBIOTICS [Suspect]
  11. ILOPROST [Suspect]
     Indication: ISCHAEMIA

REACTIONS (5)
  - DRUG ABUSER [None]
  - ISCHAEMIA [None]
  - NECROSIS [None]
  - OEDEMA PERIPHERAL [None]
  - PAIN [None]
